FAERS Safety Report 10469957 (Version 1)
Quarter: 2014Q3

REPORT INFORMATION
  Report Type: Spontaneous
  Country: NL (occurrence: NL)
  Receive Date: 20140923
  Receipt Date: 20140923
  Transmission Date: 20150326
  Serious: Yes (Death, Life-Threatening, Hospitalization)
  Sender: FDA-Public Use
  Company Number: NL-SA-2014SA126233

PATIENT
  Age: 16 Year
  Sex: Female
  Weight: 44 kg

DRUGS (7)
  1. PREDNISONE. [Suspect]
     Active Substance: PREDNISONE
     Route: 065
  2. ETHACRYNIC ACID [Suspect]
     Active Substance: ETHACRYNIC ACID
     Indication: OEDEMA PERIPHERAL
     Route: 065
  3. CHLORTHALIDONE. [Suspect]
     Active Substance: CHLORTHALIDONE
     Route: 065
  4. PREDNISONE. [Suspect]
     Active Substance: PREDNISONE
     Route: 048
  5. PREDNISONE. [Suspect]
     Active Substance: PREDNISONE
     Route: 065
  6. FUROSEMIDE. [Suspect]
     Active Substance: FUROSEMIDE
     Route: 065
  7. PREDNISONE. [Suspect]
     Active Substance: PREDNISONE
     Route: 065

REACTIONS (24)
  - Blood urea increased [Fatal]
  - Alanine aminotransferase increased [Fatal]
  - Fat necrosis [Fatal]
  - Muscle atrophy [Fatal]
  - Liver function test abnormal [Fatal]
  - Blood lactate dehydrogenase decreased [Fatal]
  - Dry skin [Fatal]
  - Proteinuria [Fatal]
  - Abdominal rigidity [Fatal]
  - Myalgia [Fatal]
  - Aspartate aminotransferase increased [Fatal]
  - Fatigue [Fatal]
  - Abdominal pain upper [Fatal]
  - Amylase increased [Fatal]
  - Acute respiratory distress syndrome [Fatal]
  - Cardiac arrest [Fatal]
  - Pancreatitis necrotising [Fatal]
  - Vomiting [Fatal]
  - Malaise [Fatal]
  - Gastrointestinal hypomotility [Fatal]
  - Haemorrhage [Fatal]
  - Cardiovascular disorder [Fatal]
  - Nausea [Fatal]
  - Haematocrit decreased [Fatal]
